FAERS Safety Report 12377852 (Version 1)
Quarter: 2016Q2

REPORT INFORMATION
  Report Type: Report from Study
  Country: US (occurrence: US)
  Receive Date: 20160517
  Receipt Date: 20160517
  Transmission Date: 20160815
  Serious: No
  Sender: FDA-Public Use
  Company Number: US-MALLINCKRODT-T201600391

PATIENT
  Age: 73 Year
  Sex: Female
  Weight: 93 kg

DRUGS (6)
  1. REPOSITORY CORTICOTROPIN INJECTION [Suspect]
     Active Substance: CORTICOTROPIN
     Dosage: 64 UNITS EVERY 3 DAYS
     Route: 058
     Dates: start: 201601, end: 201602
  2. PREDNISONE. [Concomitant]
     Active Substance: PREDNISONE
     Dosage: DOSE DECREASED TO 5 MG/DAY
     Dates: start: 20160303
  3. LASIX [Concomitant]
     Active Substance: FUROSEMIDE
     Dosage: PRN
  4. REPOSITORY CORTICOTROPIN INJECTION [Suspect]
     Active Substance: CORTICOTROPIN
     Indication: SARCOIDOSIS
     Dosage: 40 UNITS EVERY 3 DAYS
     Route: 058
     Dates: start: 20151223, end: 201601
  5. REPOSITORY CORTICOTROPIN INJECTION [Suspect]
     Active Substance: CORTICOTROPIN
     Dosage: 80 UNITS EVERY 3 DAYS
     Route: 058
     Dates: start: 20160205
  6. PREDNISONE. [Concomitant]
     Active Substance: PREDNISONE
     Dosage: UNK DOSE/FREQUENCY

REACTIONS (4)
  - Peripheral swelling [Not Recovered/Not Resolved]
  - Vision blurred [Not Recovered/Not Resolved]
  - Cushingoid [Not Recovered/Not Resolved]
  - Injection site bruising [Not Recovered/Not Resolved]

NARRATIVE: CASE EVENT DATE: 20160204
